FAERS Safety Report 12139635 (Version 3)
Quarter: 2017Q2

REPORT INFORMATION
  Report Type: Spontaneous
  Country: US (occurrence: US)
  Receive Date: 20160303
  Receipt Date: 20170516
  Transmission Date: 20170829
  Serious: No
  Sender: FDA-Public Use
  Company Number: US-APOTEX-2016AP006442

PATIENT

DRUGS (1)
  1. GABAPENTIN. [Suspect]
     Active Substance: GABAPENTIN
     Indication: PAIN IN EXTREMITY
     Dosage: UNK, TID
     Route: 065

REACTIONS (4)
  - Drug effect incomplete [Unknown]
  - Medication error [Unknown]
  - Hypoaesthesia oral [Unknown]
  - Pharyngeal hypoaesthesia [Unknown]
